FAERS Safety Report 6998579-9 (Version None)
Quarter: 2010Q3

REPORT INFORMATION
  Report Type: 
  Country: None (occurrence: None)
  Receive Date: 20100920
  Receipt Date: 20100915
  Transmission Date: 20110219
  Serious: Yes (Death, Hospitalization)
  Sender: FDA-Public Use
  Company Number: JP-BAYER-201014315BYL

PATIENT
  Age: 45 Year
  Sex: Male
  Weight: 63 kg

DRUGS (8)
  1. NEXAVAR [Suspect]
     Indication: HEPATIC NEOPLASM MALIGNANT
     Dosage: UNIT DOSE: 200 MG
     Route: 048
     Dates: start: 20100506, end: 20100531
  2. NEXAVAR [Suspect]
     Dosage: UNIT DOSE: 200 MG
     Route: 048
     Dates: start: 20100607, end: 20100722
  3. GLAKAY [Concomitant]
     Dosage: UNIT DOSE: 15 MG
     Route: 048
     Dates: start: 20100428
  4. BARACLUDE [Concomitant]
     Dosage: BEFORE NEXAVAR ADMINISTRATION
     Route: 048
     Dates: end: 20100802
  5. MUCOSTA [Concomitant]
     Indication: GASTRITIS PROPHYLAXIS
     Route: 048
     Dates: start: 20100525, end: 20100802
  6. UREPEARL [Concomitant]
     Indication: PROPHYLAXIS
     Route: 061
     Dates: start: 20100506, end: 20100531
  7. IA COR [Concomitant]
     Route: 013
     Dates: start: 20100518, end: 20100518
  8. PARIET [Concomitant]
     Indication: GASTRITIS PROPHYLAXIS
     Route: 048
     Dates: start: 20100525, end: 20100802

REACTIONS (5)
  - ASCITES [None]
  - DECREASED APPETITE [None]
  - DIARRHOEA [None]
  - FATIGUE [None]
  - HEPATIC NEOPLASM MALIGNANT [None]
